FAERS Safety Report 6936065-2 (Version None)
Quarter: 2010Q3

REPORT INFORMATION
  Report Type: 
  Country: None (occurrence: None)
  Receive Date: 20100816
  Receipt Date: 20090616
  Transmission Date: 20110219
  Serious: Yes (Other)
  Sender: FDA-Public Use
  Company Number: US-WYE-H09029409

PATIENT
  Age: 83 Year
  Sex: Female
  Weight: 39.04 kg

DRUGS (3)
  1. TYGACIL [Suspect]
     Indication: INFECTION
     Dosage: 50 MG 1X PER 12 HR, INTRAVENOUS
     Route: 042
     Dates: start: 20090416, end: 20090416
  2. AZTREONAM (AZTREONAM) [Concomitant]
  3. CLINDAMYCIN [Concomitant]

REACTIONS (5)
  - HYPERHIDROSIS [None]
  - HYPOAESTHESIA [None]
  - HYPOTENSION [None]
  - NAUSEA [None]
  - PARAESTHESIA [None]
